FAERS Safety Report 5017640-1 (Version None)
Quarter: 2006Q2

REPORT INFORMATION
  Report Type: 
  Country: None (occurrence: None)
  Receive Date: 20060605
  Receipt Date: 20041019
  Transmission Date: 20061013
  Serious: Yes (Hospitalization, Disabling)
  Sender: FDA-Public Use
  Company Number: US-ROCHE-383710

PATIENT
  Age: 30 Year
  Sex: Male

DRUGS (1)
  1. ACCUTANE [Suspect]
     Indication: ACNE
     Dosage: DOSING REGIMEN: VARIES.
     Route: 048
     Dates: start: 20020402, end: 20020615

REACTIONS (63)
  - ABDOMINAL DISCOMFORT [None]
  - ABDOMINAL PAIN [None]
  - ABDOMINAL PAIN UPPER [None]
  - ANOREXIA [None]
  - APPENDICITIS [None]
  - ARTHRALGIA [None]
  - ATTENTION DEFICIT/HYPERACTIVITY DISORDER [None]
  - BRONCHITIS [None]
  - CALCINOSIS [None]
  - CHOLECYSTITIS [None]
  - CLOSTRIDIAL INFECTION [None]
  - COLITIS [None]
  - COLITIS ULCERATIVE [None]
  - CORNEAL ABRASION [None]
  - DEPRESSION [None]
  - DUODENITIS [None]
  - DYSPEPSIA [None]
  - FACIAL BONES FRACTURE [None]
  - FEAR [None]
  - GASTRIC DISORDER [None]
  - GASTROENTERITIS VIRAL [None]
  - GASTROINTESTINAL DISORDER [None]
  - GASTROINTESTINAL INJURY [None]
  - GASTROOESOPHAGEAL REFLUX DISEASE [None]
  - GENERALISED ANXIETY DISORDER [None]
  - HEAD INJURY [None]
  - HEADACHE [None]
  - HERPANGINA [None]
  - HERPES SIMPLEX [None]
  - HIATUS HERNIA [None]
  - ILEUS [None]
  - INFLAMMATORY BOWEL DISEASE [None]
  - INGROWING NAIL [None]
  - INJURY [None]
  - INSOMNIA [None]
  - INTESTINAL POLYP [None]
  - JOINT INJURY [None]
  - MYRINGOTOMY [None]
  - NASAL CONGESTION [None]
  - NAUSEA [None]
  - NECK PAIN [None]
  - OESOPHAGITIS [None]
  - OTITIS MEDIA [None]
  - PAIN [None]
  - PARONYCHIA [None]
  - RASH [None]
  - RED BLOOD CELL COUNT DECREASED [None]
  - RHINITIS ALLERGIC [None]
  - SCOLIOSIS [None]
  - SEBORRHOEIC DERMATITIS [None]
  - SINUS CONGESTION [None]
  - SINUSITIS [None]
  - SOCIAL PHOBIA [None]
  - SOFT TISSUE INJURY [None]
  - STRESS [None]
  - TEMPOROMANDIBULAR JOINT SYNDROME [None]
  - TENSION [None]
  - TINEA CRURIS [None]
  - TONSILLECTOMY [None]
  - UMBILICAL HERNIA [None]
  - URINARY TRACT INFECTION [None]
  - UVULECTOMY [None]
  - VOMITING [None]
